FAERS Safety Report 8585712-0 (Version None)
Quarter: 2012Q3

REPORT INFORMATION
  Report Type: 
  Country: None (occurrence: None)
  Receive Date: 20120810
  Receipt Date: 20120807
  Transmission Date: 20120928
  Serious: Yes (Other)
  Sender: FDA-Public Use
  Company Number: US-PFIZER INC-2012177950

PATIENT
  Age: 74 Year
  Sex: Female
  Weight: 86.2 kg

DRUGS (6)
  1. METFORMIN [Concomitant]
     Dosage: UNK
  2. GABAPENTIN [Concomitant]
     Dosage: UNK
  3. CELEBREX [Suspect]
     Indication: ARTHRALGIA
     Dosage: 200 MG, 1X/DAY
     Route: 048
     Dates: start: 20090806
  4. SIMVASTATIN [Concomitant]
     Indication: BLOOD CHOLESTEROL INCREASED
     Dosage: UNK
  5. LISINOPRIL [Concomitant]
     Dosage: UNK
  6. AMLODIPINE [Concomitant]
     Dosage: UNK

REACTIONS (3)
  - MACULAR DEGENERATION [None]
  - IMPAIRED DRIVING ABILITY [None]
  - WEIGHT DECREASED [None]
